FAERS Safety Report 6441069-2 (Version None)
Quarter: 2009Q4

REPORT INFORMATION
  Report Type: 
  Country: None (occurrence: None)
  Receive Date: 20091116
  Receipt Date: 20091105
  Transmission Date: 20100525
  Serious: Yes (Hospitalization)
  Sender: FDA-Public Use
  Company Number: US-NOVOPROD-300406

PATIENT
  Sex: Female
  Weight: 83.447 kg

DRUGS (4)
  1. LEVEMIR [Suspect]
     Indication: INSULIN-REQUIRING TYPE 2 DIABETES MELLITUS
     Dosage: 10 MG, QD (SLIDING SCALE AT NIGHT)
     Route: 058
     Dates: start: 20040101
  2. NOVOLOG [Suspect]
     Indication: INSULIN-REQUIRING TYPE 2 DIABETES MELLITUS
     Dosage: 10 MG, (SLIDING SCALE AFTER BLOOD SUGAR REACHES 200 MG/DL)
     Route: 058
  3. PREDNISONE [Concomitant]
     Indication: ASTHMA
     Dosage: 20 MG, QD
  4. PREDNISONE [Concomitant]
     Indication: CHRONIC OBSTRUCTIVE PULMONARY DISEASE

REACTIONS (1)
  - LUNG INFECTION [None]
